FAERS Safety Report 4902356-X (Version None)
Quarter: 2006Q1

REPORT INFORMATION
  Report Type: 
  Country: None (occurrence: None)
  Receive Date: 20060202
  Receipt Date: 20060120
  Transmission Date: 20060701
  Serious: Yes (Death)
  Sender: FDA-Public Use
  Company Number: 205505

PATIENT
  Age: 61 Year
  Sex: Male

DRUGS (8)
  1. RITUXAN [Suspect]
     Indication: NON-HODGKIN'S LYMPHOMA
     Dosage: 563 MG, INTRAVENOUS
     Route: 042
     Dates: start: 20031203, end: 20031203
  2. CYCLOPHOSPHAMIDE [Concomitant]
  3. DOXORUBICIN HCL [Concomitant]
  4. VINCRISTINE [Concomitant]
  5. PREDNISONE [Concomitant]
  6. BLOOD TRANSFUSION (BLOOD, WHOLE) [Concomitant]
  7. POLARAMINE [Concomitant]
  8. KYTRIL [Concomitant]

REACTIONS (1)
  - HEPATIC FAILURE [None]
